FAERS Safety Report 9146460 (Version 5)
Quarter: 2015Q3

REPORT INFORMATION
  Report Type: Spontaneous
  Country: US (occurrence: US)
  Receive Date: 20130307
  Receipt Date: 20150902
  Transmission Date: 20151125
  Serious: Yes (Hospitalization, Other)
  Sender: FDA-Public Use
  Company Number: US-009507513-1303USA002523

PATIENT
  Sex: Female
  Weight: 64.85 kg

DRUGS (7)
  1. FOSAMAX [Suspect]
     Active Substance: ALENDRONATE SODIUM
     Indication: OSTEOPOROSIS
  2. FOSAMAX [Suspect]
     Active Substance: ALENDRONATE SODIUM
     Indication: OSTEOPENIA
     Dosage: 70 MG, UNK
     Route: 048
     Dates: start: 20040908, end: 20080128
  3. HYDROCODONE [Concomitant]
     Active Substance: HYDROCODONE
     Dosage: UNK
     Route: 048
     Dates: start: 1997
  4. VICODIN [Concomitant]
     Active Substance: ACETAMINOPHEN\HYDROCODONE BITARTRATE
     Dosage: UNK
     Route: 048
     Dates: start: 1997
  5. DILAUDID [Concomitant]
     Active Substance: HYDROMORPHONE HYDROCHLORIDE
     Dosage: UNK
     Route: 042
     Dates: start: 1997
  6. ALENDRONATE SODIUM. [Suspect]
     Active Substance: ALENDRONATE SODIUM
     Indication: OSTEOPENIA
     Dosage: 70 MG, UNK
     Route: 048
     Dates: start: 20080305, end: 20081205
  7. PROZAC [Concomitant]
     Active Substance: FLUOXETINE HYDROCHLORIDE
     Dosage: UNK
     Route: 048
     Dates: start: 1997

REACTIONS (37)
  - Atrial fibrillation [Unknown]
  - Bursitis [Recovering/Resolving]
  - Pain in extremity [Unknown]
  - Musculoskeletal pain [Unknown]
  - Femur fracture [Unknown]
  - Sedation [Unknown]
  - Benign breast lump removal [Unknown]
  - Drug ineffective [Unknown]
  - Depression [Not Recovered/Not Resolved]
  - Joint dislocation [Unknown]
  - Fluid overload [Unknown]
  - Urinary tract infection [Not Recovered/Not Resolved]
  - Hypertension [Unknown]
  - Blood cholesterol increased [Unknown]
  - Intramedullary rod insertion [Unknown]
  - Femur fracture [Unknown]
  - Atypical femur fracture [Unknown]
  - Mitral valve incompetence [Unknown]
  - Aortic arteriosclerosis [Unknown]
  - Arthralgia [Unknown]
  - Bone lesion [Unknown]
  - Intramedullary rod insertion [Unknown]
  - Anxiety [Not Recovered/Not Resolved]
  - Left atrial dilatation [Unknown]
  - Fall [Unknown]
  - Iron deficiency anaemia [Unknown]
  - Chronic gastritis [Not Recovered/Not Resolved]
  - Insomnia [Unknown]
  - Vitamin B12 deficiency [Unknown]
  - Cystitis interstitial [Unknown]
  - Basal cell carcinoma [Unknown]
  - Diverticulum [Unknown]
  - Bladder repair [Unknown]
  - Atypical femur fracture [Unknown]
  - Pulmonary hypertension [Unknown]
  - Muscle strain [Unknown]
  - Hyperlipidaemia [Unknown]

NARRATIVE: CASE EVENT DATE: 2004
